FAERS Safety Report 14311883 (Version 1)
Quarter: 2017Q4

REPORT INFORMATION
  Report Type: Spontaneous
  Country: US (occurrence: US)
  Receive Date: 20171221
  Receipt Date: 20171221
  Transmission Date: 20180321
  Serious: No
  Sender: FDA-Public Use
  Company Number: US-BRISTOL-MYERS SQUIBB COMPANY-BMS-2017-112764

PATIENT
  Sex: Female

DRUGS (1)
  1. KENALOG-40 [Suspect]
     Active Substance: TRIAMCINOLONE ACETONIDE
     Indication: ALOPECIA
     Dosage: SEE NARRATIVE
     Route: 065
     Dates: start: 20171127

REACTIONS (4)
  - Product use in unapproved indication [Unknown]
  - Injection site infection [Unknown]
  - Wrong technique in product usage process [Unknown]
  - Product use issue [Unknown]
